FAERS Safety Report 18250896 (Version 1)
Quarter: 2020Q3

REPORT INFORMATION
  Report Type: Spontaneous
  Country: US (occurrence: US)
  Receive Date: 20200909
  Receipt Date: 20200909
  Transmission Date: 20201103
  Serious: No
  Sender: FDA-Public Use
  Company Number: US-VIFOR (INTERNATIONAL) INC.-VIT-2020-08767

PATIENT
  Age: 80 Year
  Sex: Female

DRUGS (14)
  1. B12/B12 FAST [Concomitant]
  2. MAGNOX [Concomitant]
  3. VITAMIN D3 [Concomitant]
     Active Substance: CHOLECALCIFEROL
  4. VELTASSA [Suspect]
     Active Substance: PATIROMER
     Indication: URETERAL DISORDER
     Dates: start: 20170207
  5. FENOFIBRATE. [Concomitant]
     Active Substance: FENOFIBRATE
  6. JANUMET [Concomitant]
     Active Substance: METFORMIN HYDROCHLORIDE\SITAGLIPTIN PHOSPHATE
  7. ASPIRIN. [Concomitant]
     Active Substance: ASPIRIN
  8. VELTASSA [Suspect]
     Active Substance: PATIROMER
     Indication: RENAL DISORDER
  9. FISH OIL [Concomitant]
     Active Substance: FISH OIL
  10. MAGNESIUM [Concomitant]
     Active Substance: MAGNESIUM
  11. FLUDROCORT [Concomitant]
  12. FEROSUL [Concomitant]
     Active Substance: FERROUS SULFATE
  13. ASPIRIN. [Concomitant]
     Active Substance: ASPIRIN
  14. SENOKOT [Concomitant]
     Active Substance: SENNOSIDES

REACTIONS (2)
  - Blood potassium decreased [Not Recovered/Not Resolved]
  - Product use in unapproved indication [Unknown]
